FAERS Safety Report 9456892 (Version 1)
Quarter: 2013Q3

REPORT INFORMATION
  Report Type: Spontaneous
  Country: US (occurrence: None)
  Receive Date: 20130809
  Receipt Date: 20130809
  Transmission Date: 20140515
  Serious: Yes (Congenital Anomaly)
  Sender: FDA-Public Use
  Company Number: POI0573201300019

PATIENT
  Sex: 0

DRUGS (1)
  1. VENLAFAXINE [Suspect]

REACTIONS (3)
  - Atrial septal defect [None]
  - Ventricular septal defect [None]
  - Maternal drugs affecting foetus [None]
